FAERS Safety Report 5873436-X (Version None)
Quarter: 2008Q3

REPORT INFORMATION
  Report Type: 
  Country: None (occurrence: None)
  Receive Date: 20080903
  Receipt Date: 20080827
  Transmission Date: 20090109
  Serious: Yes (Hospitalization)
  Sender: FDA-Public Use
  Company Number: 2008SP017666

PATIENT
  Age: 52 Year
  Sex: Female

DRUGS (6)
  1. TEMODAL [Suspect]
     Indication: METASTATIC MALIGNANT MELANOMA
     Dosage: 225 MG;QD;PO
     Route: 048
     Dates: start: 20071111, end: 20080811
  2. SORAFENIB (SORAFENIB) [Suspect]
     Indication: METASTATIC MALIGNANT MELANOMA
     Dosage: 800 MG;QD;PO
     Route: 048
     Dates: start: 20071116, end: 20080811
  3. DOLIPRANE [Concomitant]
  4. IMODIUM [Concomitant]
  5. ZOPHREN [Concomitant]
  6. LEXOMIL [Concomitant]

REACTIONS (1)
  - PANCREATITIS [None]
